FAERS Safety Report 19285538 (Version 1)
Quarter: 2021Q2

REPORT INFORMATION
  Report Type: Spontaneous
  Country: US (occurrence: US)
  Receive Date: 20210521
  Receipt Date: 20210521
  Transmission Date: 20210717
  Serious: No
  Sender: FDA-Public Use
  Company Number: US-TEVA-2021-US-1905220

PATIENT
  Age: 62 Year
  Sex: Female

DRUGS (1)
  1. TEVA^S MUPIROCIN [Suspect]
     Active Substance: MUPIROCIN
     Indication: RHINITIS
     Route: 065
     Dates: start: 20210420

REACTIONS (3)
  - Skin burning sensation [Not Recovered/Not Resolved]
  - Product administered at inappropriate site [Unknown]
  - Product prescribing error [Unknown]
